FAERS Safety Report 15797510 (Version 1)
Quarter: 2019Q1

REPORT INFORMATION
  Report Type: Spontaneous
  Country: US (occurrence: US)
  Receive Date: 20190108
  Receipt Date: 20190108
  Transmission Date: 20190417
  Serious: Yes (Other)
  Sender: FDA-Public Use
  Company Number: PHEH2018US055192

PATIENT

DRUGS (1)
  1. FEMARA [Suspect]
     Active Substance: LETROZOLE
     Indication: BREAST CANCER
     Dosage: UNK
     Route: 065
     Dates: start: 20140421

REACTIONS (5)
  - Pathological fracture [Unknown]
  - Metastases to spine [Unknown]
  - Mass [Unknown]
  - Spinal compression fracture [Unknown]
  - Back pain [Unknown]

NARRATIVE: CASE EVENT DATE: 201508
